FAERS Safety Report 23350712 (Version 1)
Quarter: 2023Q4

REPORT INFORMATION
  Report Type: Spontaneous
  Country: CN (occurrence: CN)
  Receive Date: 20231229
  Receipt Date: 20231229
  Transmission Date: 20240110
  Serious: Yes (Other)
  Sender: FDA-Public Use
  Company Number: CN-JNJFOC-20231255734

PATIENT

DRUGS (1)
  1. IBRUTINIB [Suspect]
     Active Substance: IBRUTINIB
     Indication: B-cell lymphoma
     Dosage: 560 MG/TIME WITH 28 DAYS
     Route: 048

REACTIONS (7)
  - Nephropathy toxic [Unknown]
  - Hypertension [Unknown]
  - Cardiotoxicity [Unknown]
  - Lung adenocarcinoma stage IV [Unknown]
  - Hepatotoxicity [Unknown]
  - Pneumonia [Unknown]
  - Diarrhoea [Unknown]
